FAERS Safety Report 22187584 (Version 1)
Quarter: 2023Q2

REPORT INFORMATION
  Report Type: Report from Study
  Country: US (occurrence: US)
  Receive Date: 20230407
  Receipt Date: 20230407
  Transmission Date: 20230722
  Serious: Yes (Hospitalization)
  Sender: FDA-Public Use
  Company Number: US-SEATTLE GENETICS-2023SGN03419

PATIENT
  Age: 22 Year
  Sex: Female
  Weight: 75.283 kg

DRUGS (6)
  1. BRENTUXIMAB VEDOTIN [Suspect]
     Active Substance: BRENTUXIMAB VEDOTIN
     Indication: Hodgkin^s disease nodular sclerosis
     Dosage: UNK
     Route: 042
  2. NIVOLUMAB [Suspect]
     Active Substance: NIVOLUMAB
     Indication: Hodgkin^s disease nodular sclerosis
     Dosage: 3 MG/KG, Q2WEEKS X 4 CYCLES
     Route: 042
     Dates: start: 20221031, end: 20230123
  3. ADRIAMYCIN [Concomitant]
     Active Substance: DOXORUBICIN HYDROCHLORIDE
     Indication: Hodgkin^s disease nodular sclerosis
     Dosage: 25MG/M^2 IV
     Route: 042
     Dates: start: 20220830
  4. BLEOMYCIN [Concomitant]
     Active Substance: BLEOMYCIN SULFATE
     Indication: Hodgkin^s disease nodular sclerosis
     Dosage: 10 UNITS/M^2 IV
     Route: 042
     Dates: start: 20220830
  5. VINBLASTINE [Concomitant]
     Active Substance: VINBLASTINE
     Indication: Hodgkin^s disease nodular sclerosis
     Dosage: 6MG/M^2 IV
     Route: 042
     Dates: start: 20220830
  6. DACARBAZINE [Concomitant]
     Active Substance: DACARBAZINE
     Indication: Hodgkin^s disease nodular sclerosis
     Dosage: 375 MG/M^2 IV
     Route: 042

REACTIONS (1)
  - Urticaria [Unknown]

NARRATIVE: CASE EVENT DATE: 20230331
